FAERS Safety Report 17888208 (Version 1)
Quarter: 2020Q2

REPORT INFORMATION
  Report Type: Spontaneous
  Country: US (occurrence: US)
  Receive Date: 20200611
  Receipt Date: 20200611
  Transmission Date: 20200714
  Serious: No
  Sender: FDA-Public Use
  Company Number: None

PATIENT
  Age: 20 Year
  Sex: Female

DRUGS (1)
  1. SOD CHL 7% [Suspect]
     Active Substance: SODIUM CHLORIDE
     Indication: COUGH
     Dosage: ?          OTHER ROUTE:INH?
     Dates: start: 20200312

REACTIONS (2)
  - Maternal exposure timing unspecified [None]
  - Maternal drugs affecting foetus [None]

NARRATIVE: CASE EVENT DATE: 202006
